FAERS Safety Report 24178680 (Version 1)
Quarter: 2024Q3

REPORT INFORMATION
  Report Type: Spontaneous
  Country: PT (occurrence: PT)
  Receive Date: 20240806
  Receipt Date: 20240806
  Transmission Date: 20241016
  Serious: Yes (Other)
  Sender: MYLAN
  Company Number: None

PATIENT
  Age: 47 Year
  Sex: Female

DRUGS (2)
  1. VENLAFAXINE HYDROCHLORIDE [Suspect]
     Active Substance: VENLAFAXINE HYDROCHLORIDE
     Indication: Depression
     Dosage: 150 MILLIGRAM, QD (24 HOURS, 1 TABLET AT DINNER, EXTENDED-RELEASE CAPSULE)
     Route: 048
     Dates: start: 20240616
  2. Mepranil [Concomitant]
     Dosage: UNK
     Route: 048

REACTIONS (2)
  - Vaginal odour [Not Recovered/Not Resolved]
  - Vaginal pH decreased [Not Recovered/Not Resolved]

NARRATIVE: CASE EVENT DATE: 20240622
